FAERS Safety Report 4506070-4 (Version None)
Quarter: 2005Q1

REPORT INFORMATION
  Report Type: 
  Country: None (occurrence: None)
  Receive Date: 20041025
  Receipt Date: 20040507
  Transmission Date: 20050727
  Serious: Yes (Hospitalization)
  Sender: FDA-Public Use
  Company Number: US-JNJFOC-20040501857

PATIENT
  Age: 75 Year
  Sex: Male

DRUGS (11)
  1. INFLIXIMAB (INFLIXIMAB, RECOMBINANT) LYOPHILIZED POWDER [Suspect]
     Indication: RHEUMATOID ARTHRITIS
     Dosage: 300 MG, INTRAVENOUS
     Route: 042
     Dates: start: 20010910
  2. HYZAAR [Concomitant]
  3. WARFARIN SODIUM [Concomitant]
  4. METHOTREXATE [Concomitant]
  5. COLCHICINE (COLCHICINE) [Concomitant]
  6. ALLOPURINOL [Concomitant]
  7. FOLIC ACID [Concomitant]
  8. ALGOCOR (GALLOPAMIL HYDROCHLORIDE) [Concomitant]
  9. AMBIEN [Concomitant]
  10. TYLENOL [Concomitant]
  11. MULTIVITAMIN (MULTIVITAMIN) [Concomitant]

REACTIONS (1)
  - CEREBROVASCULAR ACCIDENT [None]
